FAERS Safety Report 6980059-8 (Version None)
Quarter: 2010Q3

REPORT INFORMATION
  Report Type: 
  Country: None (occurrence: None)
  Receive Date: 20100914
  Receipt Date: 20100909
  Transmission Date: 20110219
  Serious: Yes (Hospitalization, Other)
  Sender: FDA-Public Use
  Company Number: GB-WYE-G06601610

PATIENT
  Sex: Female

DRUGS (7)
  1. GEMTUZUMAB OZOGAMICIN [Suspect]
     Indication: ACUTE MYELOID LEUKAEMIA
     Dosage: 3 MG EVERY 1 CYC
     Dates: start: 20100705, end: 20100715
  2. ARA-C [Suspect]
     Indication: ACUTE MYELOID LEUKAEMIA
     Dosage: 100 MG/M^2 EVERY 1 CYC
     Dates: start: 20100705, end: 20100715
  3. ITRACONAZOLE [Concomitant]
     Dates: start: 20100101
  4. ALLOPURINOL [Concomitant]
     Dosage: 300 MG, FREQUENCY UNKNOWN
  5. FLUCONAZOLE [Concomitant]
     Dosage: 100 MG, FREQUENCY UNKNOWN
  6. DAUNORUBICIN HCL [Suspect]
     Indication: ACUTE MYELOID LEUKAEMIA
     Dosage: 50 MG/M^2 EVERY 1 CYC
     Dates: start: 20100705, end: 20100715
  7. AMBISOME [Suspect]
     Indication: PNEUMONIA FUNGAL
     Dates: end: 20100827

REACTIONS (7)
  - BONE MARROW FAILURE [None]
  - CELLULITIS [None]
  - DEVICE RELATED INFECTION [None]
  - PANCYTOPENIA [None]
  - PNEUMONIA FUNGAL [None]
  - SEPSIS [None]
  - STAPHYLOCOCCAL INFECTION [None]
